APPROVED DRUG PRODUCT: LIDOCAINE HYDROCHLORIDE PRESERVATIVE FREE IN PLASTIC CONTAINER
Active Ingredient: LIDOCAINE HYDROCHLORIDE
Strength: 1%
Dosage Form/Route: INJECTABLE;INJECTION
Application: A040302 | Product #001 | TE Code: AP
Applicant: HOSPIRA INC
Approved: Sep 28, 1998 | RLD: No | RS: No | Type: RX